FAERS Safety Report 14166650 (Version 2)
Quarter: 2018Q1

REPORT INFORMATION
  Report Type: Spontaneous
  Country: US (occurrence: US)
  Receive Date: 20171107
  Receipt Date: 20180105
  Transmission Date: 20180508
  Serious: Yes (Hospitalization, Other)
  Sender: FDA-Public Use
  Company Number: US-ASTRAZENECA-2017SF12299

PATIENT
  Age: 24907 Day
  Sex: Male
  Weight: 83 kg

DRUGS (12)
  1. KOMBIGLYZE XR [Suspect]
     Active Substance: METFORMIN HYDROCHLORIDE\SAXAGLIPTIN HYDROCHLORIDE
     Dosage: ORAL TABLET, ER MULTIPHASE 24 HR 2.5-1000MG
     Route: 048
     Dates: start: 20131007
  2. KOMBIGLYZE XR [Suspect]
     Active Substance: METFORMIN HYDROCHLORIDE\SAXAGLIPTIN HYDROCHLORIDE
     Dosage: 2.5-1,000 MG ORAL TABLET, ER MULTIPHASE 24 HR
     Route: 048
     Dates: start: 20150810
  3. ONGLYZA [Suspect]
     Active Substance: SAXAGLIPTIN HYDROCHLORIDE
     Route: 048
     Dates: start: 2013, end: 2015
  4. METOPROLOL SUCCINATE. [Concomitant]
     Active Substance: METOPROLOL SUCCINATE
  5. TRILIPIX [Concomitant]
     Active Substance: FENOFIBRIC ACID
  6. KOMBIGLYZE XR [Suspect]
     Active Substance: METFORMIN HYDROCHLORIDE\SAXAGLIPTIN HYDROCHLORIDE
     Route: 048
     Dates: start: 2013, end: 2015
  7. ALBUTEROL. [Concomitant]
     Active Substance: ALBUTEROL
  8. PRAVASTATIN. [Concomitant]
     Active Substance: PRAVASTATIN
  9. ATORVASTATIN [Concomitant]
     Active Substance: ATORVASTATIN
  10. CARDURA [Concomitant]
     Active Substance: DOXAZOSIN MESYLATE
  11. LOSARTAN. [Concomitant]
     Active Substance: LOSARTAN
  12. BENZONATATE. [Concomitant]
     Active Substance: BENZONATATE

REACTIONS (4)
  - Cardiovascular disorder [Unknown]
  - Acute left ventricular failure [Unknown]
  - Acute myocardial infarction [Unknown]
  - Cardiac failure congestive [Unknown]

NARRATIVE: CASE EVENT DATE: 20151107
